FAERS Safety Report 7262632-5 (Version None)
Quarter: 2011Q1

REPORT INFORMATION
  Report Type: 
  Country: None (occurrence: None)
  Receive Date: 20110130
  Receipt Date: 20100910
  Transmission Date: 20110831
  Serious: Yes (Other)
  Sender: FDA-Public Use
  Company Number: US-ABBOTT-10P-163-0670586-00

PATIENT
  Sex: Female
  Weight: 96.248 kg

DRUGS (8)
  1. HUMIRA [Suspect]
     Indication: PSORIASIS
  2. HUMIRA [Suspect]
     Indication: PSORIATIC ARTHROPATHY
     Dates: start: 20040101, end: 20100801
  3. LISINOPRIL [Concomitant]
     Indication: HYPERTENSION
  4. HUMIRA [Suspect]
     Indication: OSTEOARTHRITIS
  5. UNKNOWN VITAMIN [Concomitant]
     Indication: MACULAR DEGENERATION
  6. HUMIRA [Suspect]
     Indication: RHEUMATOID ARTHRITIS
     Dates: start: 20100801
  7. HYDROCHLOROTHIAZIDE [Concomitant]
     Indication: HYPERTENSION
  8. VITAMIN D [Concomitant]
     Indication: PRODUCT USED FOR UNKNOWN INDICATION

REACTIONS (5)
  - NEOPLASM SKIN [None]
  - BASAL CELL CARCINOMA [None]
  - ARTHRALGIA [None]
  - SKIN MASS [None]
  - PSORIATIC ARTHROPATHY [None]
